FAERS Safety Report 5772509-X (Version None)
Quarter: 2008Q2

REPORT INFORMATION
  Report Type: 
  Country: None (occurrence: None)
  Receive Date: 20080613
  Receipt Date: 20080605
  Transmission Date: 20081010
  Serious: Yes (Disabling, Other)
  Sender: FDA-Public Use
  Company Number: HK-AMGEN-US285264

PATIENT
  Sex: Female

DRUGS (11)
  1. ARANESP [Suspect]
     Indication: RENAL FAILURE CHRONIC
     Route: 058
     Dates: start: 20041201
  2. ADALAT [Concomitant]
  3. SENOKOT [Concomitant]
  4. BETALOC [Concomitant]
  5. SLOW-K [Concomitant]
  6. ATORVASTATIN [Concomitant]
  7. FOLIC ACID [Concomitant]
  8. LASIX [Concomitant]
  9. ROSIGLITAZONE [Concomitant]
  10. GENTAMICIN [Concomitant]
  11. PLACEBO [Concomitant]

REACTIONS (2)
  - APLASTIC ANAEMIA [None]
  - HAEMOGLOBIN DECREASED [None]
